FAERS Safety Report 8817309 (Version 2)
Quarter: 2012Q4

REPORT INFORMATION
  Report Type: 
  Country: US (occurrence: US)
  Receive Date: 20121002
  Receipt Date: 20121002
  Transmission Date: 20130627
  Serious: Yes (Hospitalization, Other)
  Sender: FDA-Public Use
  Company Number: US-ABBOTT-12P-163-0980148-00

PATIENT
  Age: 35 None
  Sex: Male
  Weight: 48.12 kg

DRUGS (4)
  1. HUMIRA [Suspect]
     Indication: CROHN^S DISEASE
     Dosage: Loading dose
     Route: 058
     Dates: start: 20120905, end: 20120905
  2. HUMIRA [Suspect]
     Dates: end: 20120917
  3. IMURAN [Concomitant]
     Indication: CROHN^S DISEASE
  4. IRON PILLS [Concomitant]
     Indication: VITAMIN D DEFICIENCY

REACTIONS (14)
  - Condition aggravated [Recovered/Resolved]
  - Insomnia [Recovered/Resolved]
  - Pain [Not Recovered/Not Resolved]
  - Abdominal pain [Recovering/Resolving]
  - Back pain [Not Recovered/Not Resolved]
  - Pain in extremity [Not Recovered/Not Resolved]
  - Feeling abnormal [Unknown]
  - Hypophagia [Recovered/Resolved]
  - Small intestinal obstruction [Recovered/Resolved]
  - Thrombosis [Unknown]
  - White blood cell count increased [Not Recovered/Not Resolved]
  - Pain [Unknown]
  - Adhesion [Unknown]
  - Infection [Not Recovered/Not Resolved]
